FAERS Safety Report 10648427 (Version 1)
Quarter: 2014Q4

REPORT INFORMATION
  Report Type: Spontaneous
  Country: GB (occurrence: GB)
  Receive Date: 20141212
  Receipt Date: 20141212
  Transmission Date: 20150529
  Serious: Yes (Death, Other)
  Sender: FDA-Public Use
  Company Number: GB-TEVA-527547ISR

PATIENT
  Age: 82 Year
  Sex: Female
  Weight: 63.7 kg

DRUGS (5)
  1. COLECALCIFEROL [Concomitant]
     Active Substance: CHOLECALCIFEROL
  2. AMLODIPINE [Concomitant]
     Active Substance: AMLODIPINE BESYLATE
  3. LISINOPRIL. [Concomitant]
     Active Substance: LISINOPRIL
  4. CARBOPLATIN. [Suspect]
     Active Substance: CARBOPLATIN
     Indication: OVARIAN CANCER
     Dosage: AUC5, 1ST CYCLE
     Route: 042
     Dates: start: 20141009
  5. ALENDRONIC ACID [Concomitant]
     Active Substance: ALENDRONIC ACID

REACTIONS (16)
  - Tachycardia [Unknown]
  - Dyspnoea [Recovering/Resolving]
  - Nausea [Recovered/Resolved]
  - Cardiac failure [Unknown]
  - Acute kidney injury [Unknown]
  - Diarrhoea [Recovered/Resolved]
  - Chest discomfort [Unknown]
  - Fatigue [Unknown]
  - Dizziness [Recovered/Resolved]
  - Anaemia [Unknown]
  - Bundle branch block left [Unknown]
  - Cardiac murmur [Unknown]
  - Myocardial infarction [Fatal]
  - Pulmonary oedema [Unknown]
  - Heart valve incompetence [Unknown]
  - Aortic stenosis [Unknown]

NARRATIVE: CASE EVENT DATE: 20141029
